FAERS Safety Report 21864345 (Version 1)
Quarter: 2023Q1

REPORT INFORMATION
  Report Type: Spontaneous
  Country: US (occurrence: US)
  Receive Date: 20230116
  Receipt Date: 20230116
  Transmission Date: 20230418
  Serious: No
  Sender: FDA-Public Use
  Company Number: US-BIOGEN-2019BI00718933

PATIENT
  Sex: Female

DRUGS (1)
  1. TECFIDERA [Suspect]
     Active Substance: DIMETHYL FUMARATE
     Indication: Multiple sclerosis
     Dosage: MAINTENANCE DOSE
     Route: 050
     Dates: start: 20170804

REACTIONS (7)
  - Gastrointestinal disorder [Not Recovered/Not Resolved]
  - Nasal congestion [Unknown]
  - Gastrointestinal motility disorder [Unknown]
  - White blood cell count decreased [Unknown]
  - Influenza [Recovered/Resolved]
  - Lymphocyte count decreased [Unknown]
  - Flushing [Unknown]

NARRATIVE: CASE EVENT DATE: 20170101
